FAERS Safety Report 6157959-4 (Version None)
Quarter: 2009Q2

REPORT INFORMATION
  Report Type: 
  Country: None (occurrence: None)
  Receive Date: 20090417
  Receipt Date: 20090406
  Transmission Date: 20091009
  Serious: Yes (Disabling, Other)
  Sender: FDA-Public Use
  Company Number: GB-B.I. PHARMACEUTICALS,INC./RIDGEFIELD-2009-UK-00231UK

PATIENT
  Age: 80 Year
  Sex: Male

DRUGS (8)
  1. PRAMIPEXOLE DIHYDROCHLORIDE [Suspect]
     Indication: RESTLESS LEGS SYNDROME
     Dosage: .125MG
     Route: 048
     Dates: start: 20081113, end: 20081117
  2. BISOPROLOL [Concomitant]
     Dosage: 2.5MG
     Route: 048
  3. SIMVASTATIN [Concomitant]
     Dosage: 40MG
     Route: 048
  4. BUMETANIDE [Concomitant]
     Dosage: 1MG
     Route: 048
  5. NICORANDIL [Concomitant]
     Dosage: 40MG
     Route: 048
  6. LISINOPRIL [Concomitant]
     Dosage: 10MG
     Route: 048
  7. ASPIRIN [Concomitant]
     Dosage: 75MG
     Route: 048
  8. XISROX XL [Concomitant]
     Dosage: 60MG
     Route: 048

REACTIONS (3)
  - CEREBROVASCULAR ACCIDENT [None]
  - MUSCULAR WEAKNESS [None]
  - SENSORY DISTURBANCE [None]
